FAERS Safety Report 5782060-9 (Version None)
Quarter: 2008Q2

REPORT INFORMATION
  Report Type: 
  Country: None (occurrence: None)
  Receive Date: 20080623
  Receipt Date: 20080610
  Transmission Date: 20081010
  Serious: Yes (Other)
  Sender: FDA-Public Use
  Company Number: GR-ELI_LILLY_AND_COMPANY-GR200806002369

PATIENT
  Age: 52 Year
  Sex: Female

DRUGS (2)
  1. CYMBALTA [Suspect]
     Indication: NEURALGIA
     Dosage: 60 MG, DAILY (1/D)
     Route: 048
     Dates: start: 20070703, end: 20080505
  2. CYMBALTA [Suspect]
     Dosage: 60 MG, DAILY (1/D)
     Route: 048
     Dates: start: 20080510, end: 20080609

REACTIONS (1)
  - INTERNATIONAL NORMALISED RATIO INCREASED [None]
